FAERS Safety Report 4751778-9 (Version None)
Quarter: 2005Q3

REPORT INFORMATION
  Report Type: 
  Country: None (occurrence: None)
  Receive Date: 20050818
  Receipt Date: 20041214
  Transmission Date: 20060218
  Serious: Yes (Hospitalization)
  Sender: FDA-Public Use
  Company Number: 389393

PATIENT
  Age: 39 Year
  Sex: Male

DRUGS (2)
  1. GANCICLOVIR SODIUM [Suspect]
     Indication: CYTOMEGALOVIRUS INFECTION
     Dosage: INTRAVENOUS
     Route: 042
     Dates: start: 20041215, end: 20041215
  2. VALCYTE [Suspect]
     Indication: CYTOMEGALOVIRUS INFECTION
     Dosage: ORAL
     Route: 048
     Dates: start: 20041215

REACTIONS (2)
  - DIARRHOEA [None]
  - NAUSEA [None]
